FAERS Safety Report 11557506 (Version 1)
Quarter: 2015Q3

REPORT INFORMATION
  Report Type: Spontaneous
  Country: JP (occurrence: JP)
  Receive Date: 20150926
  Receipt Date: 20150926
  Transmission Date: 20151125
  Serious: Yes (Death)
  Sender: FDA-Public Use
  Company Number: JP-ACCORD-033951

PATIENT
  Age: 47 Year
  Sex: Female

DRUGS (1)
  1. PACLITAXEL/PACLITAXEL LIPOSOME [Suspect]
     Active Substance: PACLITAXEL
     Indication: HEPATIC ANGIOSARCOMA
     Dosage: REDUCED TO ONE THIRD OF THE INITIAL DOSAGE

REACTIONS (2)
  - Neutropenia [Fatal]
  - Disease progression [Fatal]
